FAERS Safety Report 9737031 (Version 2)
Quarter: 2015Q3

REPORT INFORMATION
  Report Type: Spontaneous
  Country: US (occurrence: US)
  Receive Date: 20131206
  Receipt Date: 20150804
  Transmission Date: 20151125
  Serious: No
  Sender: FDA-Public Use
  Company Number: US-GILEAD-2009-0024132

PATIENT
  Age: 77 Year
  Sex: Female
  Weight: 59.42 kg

DRUGS (12)
  1. COUMADIN [Concomitant]
     Active Substance: WARFARIN SODIUM
  2. OMEPRAZOLE. [Concomitant]
     Active Substance: OMEPRAZOLE
  3. TYLENOL [Concomitant]
     Active Substance: ACETAMINOPHEN
  4. LETAIRIS [Suspect]
     Active Substance: AMBRISENTAN
     Indication: PULMONARY ARTERIAL HYPERTENSION
     Route: 048
     Dates: start: 20090407
  5. LASIX [Concomitant]
     Active Substance: FUROSEMIDE
  6. LANTUS [Concomitant]
     Active Substance: INSULIN GLARGINE
  7. ZOCOR [Concomitant]
     Active Substance: SIMVASTATIN
  8. CENTRUM [Concomitant]
     Active Substance: VITAMINS
  9. DIOVAN [Concomitant]
     Active Substance: VALSARTAN
  10. IRON [Concomitant]
     Active Substance: IRON
  11. REVATIO [Concomitant]
     Active Substance: SILDENAFIL CITRATE
  12. LOPRESSOR [Concomitant]
     Active Substance: METOPROLOL TARTRATE

REACTIONS (2)
  - Nasal congestion [Unknown]
  - Ocular hyperaemia [Unknown]
